FAERS Safety Report 25724293 (Version 1)
Quarter: 2025Q3

REPORT INFORMATION
  Report Type: Other
  Country: CA (occurrence: CA)
  Receive Date: 20250826
  Receipt Date: 20250826
  Transmission Date: 20251021
  Serious: Yes (Hospitalization)
  Sender: APOTEX
  Company Number: CA-PGRTD-001146335

PATIENT
  Age: 11 Year
  Sex: Female
  Weight: 63.5 kg

DRUGS (2)
  1. ACETAMINOPHEN [Suspect]
     Active Substance: ACETAMINOPHEN
     Indication: Migraine
     Route: 048
  2. NAPROXEN [Suspect]
     Active Substance: NAPROXEN
     Indication: Migraine
     Route: 048

REACTIONS (10)
  - Dissociation [Unknown]
  - Amnesia [Unknown]
  - Incoherent [Unknown]
  - Poor school attendance [Unknown]
  - Loss of personal independence in daily activities [Unknown]
  - Vomiting [Unknown]
  - Nausea [Unknown]
  - Photophobia [Unknown]
  - Headache [Unknown]
  - Medication overuse headache [Unknown]
